FAERS Safety Report 9280027 (Version 1)
Quarter: 2013Q2

REPORT INFORMATION
  Report Type: Spontaneous
  Country: US (occurrence: None)
  Receive Date: 20130506
  Receipt Date: 20130506
  Transmission Date: 20140414
  Serious: Yes (Other)
  Sender: FDA-Public Use
  Company Number: None

PATIENT
  Age: 58 Year
  Sex: Female
  Weight: 89.81 kg

DRUGS (1)
  1. METFORMIN HYDROCHLORIDE [Suspect]
     Indication: TYPE 2 DIABETES MELLITUS
     Dates: start: 20130114, end: 20130405

REACTIONS (16)
  - Rash erythematous [None]
  - Rash [None]
  - Blister [None]
  - Rash [None]
  - Pruritus [None]
  - Rash pruritic [None]
  - Abdominal distension [None]
  - Nausea [None]
  - Fatigue [None]
  - Diarrhoea [None]
  - Pyrexia [None]
  - Chills [None]
  - Dehydration [None]
  - Thirst [None]
  - Pollakiuria [None]
  - Glycosylated haemoglobin increased [None]
